FAERS Safety Report 23923857 (Version 1)
Quarter: 2024Q2

REPORT INFORMATION
  Report Type: Spontaneous
  Country: AU (occurrence: AU)
  Receive Date: 20240531
  Receipt Date: 20240531
  Transmission Date: 20240715
  Serious: Yes (Other)
  Sender: FDA-Public Use
  Company Number: AU-HALEON-2178911

PATIENT
  Age: 54 Year
  Sex: Female

DRUGS (1)
  1. ACETAMINOPHEN [Suspect]
     Active Substance: ACETAMINOPHEN
     Indication: Toothache

REACTIONS (3)
  - Choking [Recovered/Resolved]
  - Cough [Unknown]
  - Product use complaint [Unknown]

NARRATIVE: CASE EVENT DATE: 20240526
